FAERS Safety Report 9714533 (Version 1)
Quarter: 2013Q4

REPORT INFORMATION
  Report Type: Report from Study
  Country: US (occurrence: US)
  Receive Date: 20131126
  Receipt Date: 20131126
  Transmission Date: 20140711
  Serious: Yes (Disabling, Other)
  Sender: FDA-Public Use
  Company Number: US-ASTRAZENECA-2013SE82518

PATIENT
  Age: 54 Year
  Sex: Male
  Weight: 66.7 kg

DRUGS (24)
  1. OMEPRAZOLE [Suspect]
     Indication: GASTROOESOPHAGEAL REFLUX DISEASE
     Dosage: DAILY, ONE DOSE OF THE OMEPRAZOLE 20 OR 40 MG
     Route: 048
     Dates: start: 20131021, end: 20131021
  2. OMEPRAZOLE [Suspect]
     Indication: VARICES OESOPHAGEAL
     Dosage: DAILY, ONE DOSE OF THE OMEPRAZOLE 20 OR 40 MG
     Route: 048
     Dates: start: 20131021, end: 20131021
  3. OMEPRAZOLE [Suspect]
     Indication: PEPTIC ULCER HAEMORRHAGE
     Dosage: DAILY, ONE DOSE OF THE OMEPRAZOLE 20 OR 40 MG
     Route: 048
     Dates: start: 20131021, end: 20131021
  4. NEXIUM [Suspect]
     Indication: PEPTIC ULCER HAEMORRHAGE
     Route: 048
     Dates: start: 20060706, end: 20131021
  5. NEXIUM [Suspect]
     Indication: GASTROOESOPHAGEAL REFLUX DISEASE
     Route: 048
     Dates: start: 20060706, end: 20131021
  6. NEXIUM [Suspect]
     Indication: VARICES OESOPHAGEAL
     Route: 048
     Dates: start: 20060706, end: 20131021
  7. NEXIUM [Suspect]
     Indication: HELICOBACTER GASTRITIS
     Route: 048
     Dates: start: 20060706, end: 20131021
  8. NEXIUM [Suspect]
     Indication: PEPTIC ULCER HAEMORRHAGE
     Route: 048
     Dates: start: 20131021
  9. NEXIUM [Suspect]
     Indication: GASTROOESOPHAGEAL REFLUX DISEASE
     Route: 048
     Dates: start: 20131021
  10. NEXIUM [Suspect]
     Indication: VARICES OESOPHAGEAL
     Route: 048
     Dates: start: 20131021
  11. NEXIUM [Suspect]
     Indication: HELICOBACTER GASTRITIS
     Route: 048
     Dates: start: 20131021
  12. ATENOLOL [Suspect]
     Indication: HYPERTENSION
     Route: 048
     Dates: start: 2006
  13. SEROQUEL [Suspect]
     Indication: SCHIZOPHRENIA
     Route: 048
     Dates: start: 2010
  14. LANTUS [Concomitant]
     Indication: DIABETES MELLITUS
     Dosage: 70 U
     Route: 058
     Dates: start: 2006
  15. BENAZEPRIL [Concomitant]
     Indication: RENAL DISORDER
     Route: 048
     Dates: start: 2006
  16. BENAZEPRIL [Concomitant]
     Indication: LIVER DISORDER
     Route: 048
     Dates: start: 2006
  17. METFORMIN [Concomitant]
     Indication: DIABETES MELLITUS
     Dosage: 2 850MG QAM
     Route: 048
     Dates: start: 2006
  18. METFORMIN [Concomitant]
     Indication: DIABETES MELLITUS
     Dosage: EVERY PM
     Route: 048
  19. SIMVASTATIN [Concomitant]
     Indication: BLOOD CHOLESTEROL INCREASED
     Route: 048
     Dates: start: 2006
  20. FAMOTIDINE [Concomitant]
     Indication: OESOPHAGEAL DISORDER
     Route: 048
     Dates: start: 2006
  21. CLONAZPAM [Concomitant]
     Indication: ANXIETY
     Route: 048
     Dates: start: 2010
  22. DICLOXACILLIN [Concomitant]
  23. PEPTO BISMAL [Concomitant]
  24. CIMETIDINE [Concomitant]
     Dosage: BID

REACTIONS (13)
  - Paraesthesia [Unknown]
  - Hypoaesthesia [Unknown]
  - Schizophrenia, paranoid type [Unknown]
  - Post-traumatic stress disorder [Unknown]
  - Drug hypersensitivity [Unknown]
  - Helicobacter test positive [Not Recovered/Not Resolved]
  - Abnormal faeces [Unknown]
  - Aphagia [Not Recovered/Not Resolved]
  - Weight decreased [Unknown]
  - Eructation [Unknown]
  - Burning sensation [Unknown]
  - Circumstance or information capable of leading to medication error [Unknown]
  - Drug dose omission [Unknown]
